FAERS Safety Report 14830199 (Version 1)
Quarter: 2018Q2

REPORT INFORMATION
  Report Type: Report from Study
  Country: None (occurrence: JP)
  Receive Date: 20180430
  Receipt Date: 20180430
  Transmission Date: 20180711
  Serious: Yes (Death, Life-Threatening)
  Sender: FDA-Public Use
  Company Number: JP-BAUSCH-BL-2018-012385

PATIENT
  Age: 66 Year
  Sex: Male

DRUGS (10)
  1. PITAVASTATIN. [Concomitant]
     Active Substance: PITAVASTATIN CALCIUM
     Indication: DYSLIPIDAEMIA
     Dosage: 1 MG/DAY
  2. FAMOTIDIN [Concomitant]
     Indication: PRODUCT USED FOR UNKNOWN INDICATION
  3. VALSARTAN AMLODIPINE BESILATE [Concomitant]
     Indication: PRODUCT USED FOR UNKNOWN INDICATION
  4. TARGRETIN [Suspect]
     Active Substance: BEXAROTENE
     Route: 048
     Dates: start: 20171127, end: 20171130
  5. DUIVEN [Concomitant]
     Indication: PRODUCT USED FOR UNKNOWN INDICATION
  6. CALONAL [Concomitant]
     Active Substance: ACETAMINOPHEN
     Indication: PRODUCT USED FOR UNKNOWN INDICATION
  7. DERMOVATE [Concomitant]
     Active Substance: CLOBETASOL
     Indication: PRODUCT USED FOR UNKNOWN INDICATION
  8. METOCLOPRAMIDE. [Concomitant]
     Active Substance: METOCLOPRAMIDE
     Indication: PRODUCT USED FOR UNKNOWN INDICATION
  9. FURORIDOGERU [Concomitant]
     Indication: PRODUCT USED FOR UNKNOWN INDICATION
  10. TARGRETIN [Suspect]
     Active Substance: BEXAROTENE
     Indication: MYCOSIS FUNGOIDES
     Route: 048
     Dates: start: 20171117, end: 20171126

REACTIONS (3)
  - Dyslipidaemia [Recovering/Resolving]
  - Hypothyroidism [Recovering/Resolving]
  - Renal failure [Not Recovered/Not Resolved]

NARRATIVE: CASE EVENT DATE: 20171122
